FAERS Safety Report 8775255 (Version 1)
Quarter: 2012Q4

REPORT INFORMATION
  Report Type: 
  Country: US (occurrence: US)
  Receive Date: 20120910
  Receipt Date: 20120910
  Transmission Date: 20130627
  Serious: No
  Sender: FDA-Public Use
  Company Number: US-BAYER-2012-091541

PATIENT
  Sex: Female

DRUGS (2)
  1. BEYAZ [Suspect]
  2. YAZ [Suspect]

REACTIONS (3)
  - Abnormal sensation in eye [None]
  - Vision blurred [None]
  - Pain [None]
